FAERS Safety Report 7212663-6 (Version None)
Quarter: 2011Q1

REPORT INFORMATION
  Report Type: 
  Country: None (occurrence: None)
  Receive Date: 20110106
  Receipt Date: 20110104
  Transmission Date: 20110831
  Serious: No
  Sender: FDA-Public Use
  Company Number: FR-JNJFOC-20101207574

PATIENT
  Age: 50 Year
  Sex: Male

DRUGS (2)
  1. ACTIQ [Suspect]
     Indication: SCIATICA
     Route: 065
  2. DURAGESIC-100 [Suspect]
     Indication: SCIATICA
     Route: 062

REACTIONS (1)
  - DRUG PRESCRIBING ERROR [None]
